FAERS Safety Report 6643686-3 (Version None)
Quarter: 2010Q1

REPORT INFORMATION
  Report Type: 
  Country: None (occurrence: None)
  Receive Date: 20100321
  Receipt Date: 20100308
  Transmission Date: 20100710
  Serious: Yes (Life-Threatening)
  Sender: FDA-Public Use
  Company Number: FR-BRISTOL-MYERS SQUIBB COMPANY-15025026

PATIENT

DRUGS (2)
  1. METOPROLOL TARTRATE [Suspect]
  2. ALCOHOL [Suspect]

REACTIONS (2)
  - CIRCULATORY COLLAPSE [None]
  - DRUG TOXICITY [None]
